FAERS Safety Report 7618613-2 (Version None)
Quarter: 2011Q3

REPORT INFORMATION
  Report Type: 
  Country: None (occurrence: None)
  Receive Date: 20110718
  Receipt Date: 20110709
  Transmission Date: 20111222
  Serious: Yes (Other)
  Sender: FDA-Public Use
  Company Number: DE-BRISTOL-MYERS SQUIBB COMPANY-15891732

PATIENT
  Sex: Female

DRUGS (1)
  1. ONGLYZA [Suspect]

REACTIONS (2)
  - BORRELIA INFECTION [None]
  - GASTRIC DISORDER [None]
